FAERS Safety Report 10562433 (Version 1)
Quarter: 2014Q4

REPORT INFORMATION
  Report Type: Spontaneous
  Country: US (occurrence: None)
  Receive Date: 20141103
  Receipt Date: 20141103
  Transmission Date: 20150529
  Serious: No
  Sender: FDA-Public Use
  Company Number: None

PATIENT
  Age: 61 Year
  Sex: Female
  Weight: 62.6 kg

DRUGS (2)
  1. CLINDAMYCIN [Suspect]
     Active Substance: CLINDAMYCIN\CLINDAMYCIN PHOSPHATE
     Indication: TOOTH INFECTION
     Dosage: 1 CAPSULE
     Route: 048
     Dates: start: 20141008, end: 20141018
  2. CLINDAMYCIN [Suspect]
     Active Substance: CLINDAMYCIN\CLINDAMYCIN PHOSPHATE
     Dosage: 1 CAPSULE
     Route: 048
     Dates: start: 20141008, end: 20141018

REACTIONS (2)
  - Anxiety [None]
  - Depression [None]

NARRATIVE: CASE EVENT DATE: 20141008
